FAERS Safety Report 17280769 (Version 3)
Quarter: 2020Q2

REPORT INFORMATION
  Report Type: Spontaneous
  Country: HR (occurrence: HR)
  Receive Date: 20200117
  Receipt Date: 20200610
  Transmission Date: 20200713
  Serious: Yes (Death, Hospitalization, Other)
  Sender: FDA-Public Use
  Company Number: HR-AMGEN-HRVSP2020005829

PATIENT
  Age: 64 Year
  Sex: Female
  Weight: 67 kg

DRUGS (26)
  1. PIPERACILLIN AND TAZOBACTAM [Concomitant]
     Active Substance: PIPERACILLIN SODIUM\TAZOBACTAM SODIUM
     Indication: ANTIBIOTIC THERAPY
     Dosage: UNK
     Dates: start: 2019, end: 2019
  2. CYCLOPHOSPHAMIDE. [Concomitant]
     Active Substance: CYCLOPHOSPHAMIDE
     Indication: ADRENAL ADENOMA
     Dosage: UNK
     Dates: start: 20190314
  3. PERINEVA [Concomitant]
     Active Substance: PERINDOPRIL ERBUMINE
     Dosage: UNK
  4. SORTIS [Concomitant]
     Active Substance: ATORVASTATIN
     Dosage: UNK
  5. CEPHALEXINE [Concomitant]
     Active Substance: CEPHALEXIN
     Indication: ANTIBIOTIC THERAPY
     Dosage: UNK
     Dates: start: 2019
  6. DEXAMETHASONE. [Concomitant]
     Active Substance: DEXAMETHASONE
     Indication: ADRENAL ADENOMA
     Dosage: 80 MILLIGRAM, QWK
     Dates: start: 20190315, end: 20191224
  7. CLEXANE [Concomitant]
     Active Substance: ENOXAPARIN SODIUM
     Dosage: 0.6 MILLILITER, QD
     Route: 058
  8. FOLACIN [FOLIC ACID] [Concomitant]
     Active Substance: FOLIC ACID
     Dosage: 5 MILLIGRAM
  9. BORTEZOMIB. [Concomitant]
     Active Substance: BORTEZOMIB
     Indication: ADRENAL ADENOMA
     Dosage: UNK
     Dates: start: 20190314, end: 20190722
  10. LENALIDOMIDE [Concomitant]
     Active Substance: LENALIDOMIDE
     Indication: ADRENAL ADENOMA
     Dosage: UNK
     Dates: start: 20190807
  11. TARGINACT [Concomitant]
     Active Substance: NALOXONE HYDROCHLORIDE\OXYCODONE HYDROCHLORIDE
     Dosage: 5/ 2.5 MG 2 X 1 TABLET
  12. VIROLEX [ACICLOVIR] [Concomitant]
     Dosage: 200 MILLIGRAM
  13. BYOL COR [Concomitant]
     Active Substance: BISOPROLOL FUMARATE
     Dosage: UNK
  14. PHYSIOTENS [Concomitant]
     Active Substance: MOXONIDINE
     Dosage: 0.2 MG IN THE MORNING + 0.4 MG IN THE EVENING
  15. CONCOR [Concomitant]
     Active Substance: BISOPROLOL FUMARATE
     Dosage: 1.25 MILLIGRAM
  16. SODIUM BICARBONATE. [Concomitant]
     Active Substance: SODIUM BICARBONATE
     Dosage: 2 X 1/4 TEA-SPOON
  17. THALIDOMIDE [Concomitant]
     Active Substance: THALIDOMIDE
     Indication: ADRENAL ADENOMA
     Dosage: UNK
     Dates: start: 201905
  18. CONTROLOC [Concomitant]
     Active Substance: PANTOPRAZOLE SODIUM
     Dosage: 40 MILLIGRAM, QD
  19. DARATUMUMAB [Concomitant]
     Active Substance: DARATUMUMAB
     Indication: ADRENAL ADENOMA
     Dosage: UNK
     Dates: start: 20190807
  20. ADENURIC [Concomitant]
     Active Substance: FEBUXOSTAT
     Indication: NEPHROLITHIASIS
     Dosage: 80 MILLIGRAM (1X)
     Dates: start: 20191129, end: 20200125
  21. SORBISTERIT [Concomitant]
     Dosage: ONE DOSAGE PER DAY
  22. FILGRASTIM [Suspect]
     Active Substance: FILGRASTIM
     Indication: FEBRILE NEUTROPENIA
     Dosage: UNK
     Route: 065
     Dates: start: 201904
  23. KYPROLIS [Suspect]
     Active Substance: CARFILZOMIB
     Indication: ADRENAL ADENOMA
     Dosage: 20 MILLIGRAM/SQ. METER, QWK
     Route: 042
     Dates: start: 20191217
  24. KYPROLIS [Suspect]
     Active Substance: CARFILZOMIB
     Indication: PLASMA CELL MYELOMA
     Dosage: 70 MILLIGRAM/SQ. METER
     Route: 042
     Dates: start: 20191224, end: 20191224
  25. DEXAMETHASONE. [Concomitant]
     Active Substance: DEXAMETHASONE
     Indication: PLASMA CELL MYELOMA
  26. PLIVIT D3 [Concomitant]
     Active Substance: CHOLECALCIFEROL
     Dosage: 6 DROP

REACTIONS (6)
  - Plasma cell leukaemia [Unknown]
  - Renal impairment [Unknown]
  - Thrombotic thrombocytopenic purpura [Fatal]
  - Urinary tract infection pseudomonal [Unknown]
  - Bronchitis [Unknown]
  - Thrombotic microangiopathy [Unknown]

NARRATIVE: CASE EVENT DATE: 201905
